FAERS Safety Report 9110372 (Version 1)
Quarter: 2013Q1

REPORT INFORMATION
  Report Type: Spontaneous
  Country: US (occurrence: US)
  Receive Date: 20130219
  Receipt Date: 20130219
  Transmission Date: 20140127
  Serious: No
  Sender: FDA-Public Use
  Company Number: US-BRISTOL-MYERS SQUIBB COMPANY-16577314

PATIENT
  Sex: Male

DRUGS (3)
  1. ABATACEPT SUBQ INJECTION 125MG/ML [Suspect]
     Dosage: ORENCIA,CHANGED WEEKLY TREATMENT TO Q 10DAYS
     Route: 058
     Dates: start: 201112
  2. METHOTREXATE [Concomitant]
     Dosage: 1 DF : 7 INJ
  3. PREDNISONE [Concomitant]
     Dosage: LOW DOSE

REACTIONS (2)
  - Malaise [Unknown]
  - Drug ineffective [Unknown]
